FAERS Safety Report 5530132-6 (Version None)
Quarter: 2007Q4

REPORT INFORMATION
  Report Type: 
  Country: None (occurrence: None)
  Receive Date: 20071130
  Receipt Date: 20071122
  Transmission Date: 20080405
  Serious: Yes (Hospitalization)
  Sender: FDA-Public Use
  Company Number: PHBS2007DK19937

PATIENT
  Sex: Male

DRUGS (8)
  1. DIOVAN [Suspect]
     Dosage: 160 MG/DAY
     Route: 048
     Dates: start: 20070410
  2. DIOVAN [Suspect]
     Dosage: 80 MG/DAY
     Route: 048
  3. AMLODIPINE [Suspect]
     Dosage: 5 MG, UNK
  4. POTASSIUM CHLORIDE [Concomitant]
  5. MAREVAN [Concomitant]
     Dates: end: 20070901
  6. FURIX [Concomitant]
  7. SELOZOK [Concomitant]
     Dosage: 100 MG, UNK
  8. NORVASC [Concomitant]

REACTIONS (1)
  - ATRIAL FIBRILLATION [None]
